FAERS Safety Report 18036687 (Version 3)
Quarter: 2021Q2

REPORT INFORMATION
  Report Type: Spontaneous
  Country: US (occurrence: US)
  Receive Date: 20200717
  Receipt Date: 20210412
  Transmission Date: 20210717
  Serious: Yes (Other)
  Sender: FDA-Public Use
  Company Number: US-GLAXOSMITHKLINE-US2020134448

PATIENT
  Sex: Male

DRUGS (3)
  1. ZANTAC [Suspect]
     Active Substance: RANITIDINE HYDROCHLORIDE
     Route: 065
     Dates: start: 19850115, end: 20200115
  2. ZANTAC [Suspect]
     Active Substance: RANITIDINE HYDROCHLORIDE
     Indication: ABDOMINAL DISCOMFORT
     Dosage: 150 MG, QD,2 A DAY, 1 EVERY 12 HOURS
     Route: 065
     Dates: start: 198812, end: 198910
  3. ZANTAC [Suspect]
     Active Substance: RANITIDINE HYDROCHLORIDE
     Indication: ABDOMINAL DISCOMFORT
     Dosage: 150 MG, QD,2 A DAY, 1 EVERY 12 HOURS
     Route: 065
     Dates: start: 198812, end: 198910

REACTIONS (3)
  - Skin cancer [Unknown]
  - Pancreatitis [Unknown]
  - Oesophageal carcinoma [Unknown]
